FAERS Safety Report 6749731-9 (Version None)
Quarter: 2010Q2

REPORT INFORMATION
  Report Type: 
  Country: None (occurrence: None)
  Receive Date: 20100527
  Receipt Date: 20100527
  Transmission Date: 20101027
  Serious: Yes (Life-Threatening, Hospitalization)
  Sender: FDA-Public Use
  Company Number: None

PATIENT
  Age: 64 Year
  Sex: Female
  Weight: 113.3993 kg

DRUGS (1)
  1. HUMIRA [Suspect]
     Indication: RHEUMATOID ARTHRITIS
     Dosage: 40 MG EVERY 14 DAYS
     Dates: start: 20091115, end: 20100515

REACTIONS (12)
  - DECREASED APPETITE [None]
  - DIALYSIS [None]
  - FATIGUE [None]
  - GENERAL PHYSICAL HEALTH DETERIORATION [None]
  - HISTOPLASMOSIS [None]
  - IMMUNOSUPPRESSION [None]
  - LIVER INJURY [None]
  - MULTI-ORGAN DISORDER [None]
  - NIGHT SWEATS [None]
  - RENAL INJURY [None]
  - TRAUMATIC LUNG INJURY [None]
  - UNRESPONSIVE TO STIMULI [None]
